FAERS Safety Report 18087146 (Version 1)
Quarter: 2020Q3

REPORT INFORMATION
  Report Type: Other
  Country: FR (occurrence: FR)
  Receive Date: 20200729
  Receipt Date: 20200729
  Transmission Date: 20201103
  Serious: Yes (Other)
  Sender: FDA-Public Use
  Company Number: FR-ASTELLAS-2020US025069

PATIENT
  Age: 70 Year
  Sex: Female

DRUGS (2)
  1. TERALITHE [Suspect]
     Active Substance: LITHIUM CARBONATE
     Indication: PRODUCT USED FOR UNKNOWN INDICATION
     Route: 048
     Dates: start: 2017
  2. VESICARE [Suspect]
     Active Substance: SOLIFENACIN SUCCINATE
     Indication: PRODUCT USED FOR UNKNOWN INDICATION
     Route: 048
     Dates: start: 2016

REACTIONS (6)
  - Extrapyramidal disorder [Not Recovered/Not Resolved]
  - Fall [Not Recovered/Not Resolved]
  - Dry mouth [Not Recovered/Not Resolved]
  - Disorientation [Not Recovered/Not Resolved]
  - Constipation [Not Recovered/Not Resolved]
  - Memory impairment [Not Recovered/Not Resolved]

NARRATIVE: CASE EVENT DATE: 202007
